FAERS Safety Report 8340882-4 (Version None)
Quarter: 2012Q2

REPORT INFORMATION
  Report Type: 
  Country: None (occurrence: None)
  Receive Date: 20120503
  Receipt Date: 20120426
  Transmission Date: 20120825
  Serious: Yes (Hospitalization)
  Sender: FDA-Public Use
  Company Number: GER/UKI/12/0024096

PATIENT
  Age: 85 Year
  Sex: Female

DRUGS (7)
  1. CLOPIDEGREL [Suspect]
     Indication: PRODUCT USED FOR UNKNOWN INDICATION
     Dosage: 75 MG, 1 IN 1 D, ORAL
     Route: 048
     Dates: start: 20110513
  2. ATENOLOL [Concomitant]
  3. RAMIPRIL [Concomitant]
  4. RISEDRONATE SODIUM [Suspect]
     Indication: PRODUCT USED FOR UNKNOWN INDICATION
     Dosage: 35 MG, 1 IN1 WK, ORAL
     Route: 048
  5. CALCEOS (LEKOVIT CA) [Concomitant]
  6. PANTOPRAZOLE [Concomitant]
  7. ATORVASTATIN [Concomitant]

REACTIONS (2)
  - FALL [None]
  - VOMITING [None]
